FAERS Safety Report 12001175 (Version 1)
Quarter: 2016Q1

REPORT INFORMATION
  Report Type: Other
  Country: GB (occurrence: GB)
  Receive Date: 20160204
  Receipt Date: 20160204
  Transmission Date: 20160526
  Serious: Yes (Other)
  Sender: FDA-Public Use
  Company Number: GB-MYLANLABS-2016M1003679

PATIENT

DRUGS (2)
  1. CO-CYPRINDIOL [Concomitant]
     Dosage: UNK
  2. ISOTRETINOIN [Suspect]
     Active Substance: ISOTRETINOIN
     Indication: ACNE
     Dosage: 50 MG, UNK
     Route: 048
     Dates: end: 201510

REACTIONS (3)
  - Depression [Recovering/Resolving]
  - Paranoia [Recovering/Resolving]
  - Suicidal ideation [Unknown]

NARRATIVE: CASE EVENT DATE: 201507
